FAERS Safety Report 16564894 (Version 1)
Quarter: 2019Q3

REPORT INFORMATION
  Report Type: Spontaneous
  Country: US (occurrence: US)
  Receive Date: 20190711
  Receipt Date: 20190711
  Transmission Date: 20191004
  Serious: Yes (Hospitalization)
  Sender: FDA-Public Use
  Company Number: None

PATIENT
  Age: 77 Year
  Sex: Female

DRUGS (20)
  1. METOPROL SUC [Concomitant]
     Dates: start: 20190710
  2. VITAMIN C [Concomitant]
     Active Substance: ASCORBIC ACID
     Dates: start: 20190710
  3. EPIPEN [Concomitant]
     Active Substance: EPINEPHRINE
     Dates: start: 20190710
  4. FISH OIL [Concomitant]
     Active Substance: FISH OIL
     Dates: start: 20190710
  5. FERROUS SULFATE. [Concomitant]
     Active Substance: FERROUS SULFATE
     Dates: start: 20190710
  6. TURMERIC [Concomitant]
     Active Substance: HERBALS\TURMERIC
     Dates: start: 20190710
  7. AMLODIPINE [Concomitant]
     Active Substance: AMLODIPINE BESYLATE
     Dates: start: 20190710
  8. HYDROCO/APAP [Concomitant]
     Active Substance: ACETAMINOPHEN\HYDROCODONE
     Dates: start: 20190710
  9. XELJANZ XR [Suspect]
     Active Substance: TOFACITINIB CITRATE
     Indication: RHEUMATOID ARTHRITIS
     Route: 048
     Dates: start: 20181026
  10. VITAMIN D [Concomitant]
     Active Substance: VITAMIN D NOS
     Dates: start: 20190710
  11. NEURONTIN [Concomitant]
     Active Substance: GABAPENTIN
     Dates: start: 20190710
  12. ROPINIROLE. [Concomitant]
     Active Substance: ROPINIROLE
     Dates: start: 20190710
  13. IBUPROFEN. [Concomitant]
     Active Substance: IBUPROFEN
     Dates: start: 20190710
  14. PLAQUENIL [Concomitant]
     Active Substance: HYDROXYCHLOROQUINE SULFATE
     Dates: start: 20190710
  15. RESTASIS [Concomitant]
     Active Substance: CYCLOSPORINE
     Dates: start: 20190710
  16. URSODIOL. [Concomitant]
     Active Substance: URSODIOL
     Dates: start: 20190710
  17. B COMPLETE [Concomitant]
     Dates: start: 20190710
  18. FUROSEMIDE. [Concomitant]
     Active Substance: FUROSEMIDE
     Dates: start: 20190710
  19. IRBESARTAN. [Concomitant]
     Active Substance: IRBESARTAN
     Dates: start: 20190710
  20. LUTEIN [Concomitant]
     Active Substance: LUTEIN
     Dates: start: 20190710

REACTIONS (3)
  - Knee arthroplasty [None]
  - Pain [None]
  - Arthropathy [None]
